FAERS Safety Report 11939845 (Version 1)
Quarter: 2016Q1

REPORT INFORMATION
  Report Type: Spontaneous
  Country: DE (occurrence: DE)
  Receive Date: 20160122
  Receipt Date: 20160122
  Transmission Date: 20160526
  Serious: Yes (Hospitalization, Other)
  Sender: FDA-Public Use
  Company Number: DE-BAYER-2015-494167

PATIENT
  Age: 41 Year
  Sex: Female
  Weight: 65 kg

DRUGS (1)
  1. MIRENA [Suspect]
     Active Substance: LEVONORGESTREL
     Indication: CONTRACEPTION
     Dosage: 20 MCG/24HR, CONT
     Route: 015
     Dates: start: 20130703, end: 20151230

REACTIONS (5)
  - Pregnancy with contraceptive device [None]
  - Device dislocation [None]
  - Abortion missed [None]
  - Appendicitis perforated [None]
  - Drug ineffective [None]

NARRATIVE: CASE EVENT DATE: 2015
